FAERS Safety Report 6148740-0 (Version None)
Quarter: 2009Q2

REPORT INFORMATION
  Report Type: 
  Country: None (occurrence: None)
  Receive Date: 20090408
  Receipt Date: 20090402
  Transmission Date: 20091009
  Serious: Yes (Hospitalization)
  Sender: FDA-Public Use
  Company Number: US-AMGEN-KDL341474

PATIENT
  Sex: Female
  Weight: 49.9 kg

DRUGS (10)
  1. PROCRIT [Suspect]
     Indication: RENAL FAILURE CHRONIC
     Route: 058
     Dates: start: 20080818, end: 20090122
  2. ARANESP [Suspect]
     Indication: RENAL FAILURE CHRONIC
  3. LASIX [Concomitant]
  4. COREG [Concomitant]
  5. SYNTHROID [Concomitant]
  6. NEXIUM [Concomitant]
  7. UNSPECIFIED MEDICATION [Concomitant]
  8. DETROL [Concomitant]
  9. FOSAMAX [Concomitant]
  10. VENOFER [Concomitant]
     Route: 042
     Dates: start: 20080915, end: 20090122

REACTIONS (2)
  - BLOOD PRESSURE INCREASED [None]
  - COMA [None]
